FAERS Safety Report 10606732 (Version 1)
Quarter: 2014Q4

REPORT INFORMATION
  Report Type: Spontaneous
  Country: US (occurrence: None)
  Receive Date: 20141124
  Receipt Date: 20141124
  Transmission Date: 20150529
  Serious: Yes (Hospitalization)
  Sender: FDA-Public Use
  Company Number: None

PATIENT
  Age: 56 Year
  Sex: Male
  Weight: 100.2 kg

DRUGS (10)
  1. APAP [Concomitant]
     Active Substance: ACETAMINOPHEN
  2. SANDOSTATIN [Concomitant]
     Active Substance: OCTREOTIDE ACETATE
  3. NS [Concomitant]
     Active Substance: SODIUM CHLORIDE
  4. PANTOPRAZOLE [Concomitant]
     Active Substance: PANTOPRAZOLE SODIUM
  5. ONDANSETRON [Concomitant]
     Active Substance: ONDANSETRON
  6. NAPROXEN. [Suspect]
     Active Substance: NAPROXEN
     Indication: SURGERY
     Route: 048
  7. HYDROCODONE [Concomitant]
     Active Substance: HYDROCODONE
  8. HYDROMORPHONE [Concomitant]
     Active Substance: HYDROMORPHONE
  9. LORAZEPAM. [Concomitant]
     Active Substance: LORAZEPAM
  10. NAPROXEN. [Suspect]
     Active Substance: NAPROXEN
     Indication: HERNIA
     Route: 048

REACTIONS (4)
  - Dizziness [None]
  - Gastric ulcer [None]
  - Anaemia [None]
  - Upper gastrointestinal haemorrhage [None]

NARRATIVE: CASE EVENT DATE: 20140714
